FAERS Safety Report 9555420 (Version 3)
Quarter: 2014Q4

REPORT INFORMATION
  Report Type: Spontaneous
  Country: JP (occurrence: JP)
  Receive Date: 20130926
  Receipt Date: 20141005
  Transmission Date: 20150529
  Serious: Yes (Hospitalization)
  Sender: FDA-Public Use
  Company Number: JP-JNJFOC-20130912135

PATIENT
  Age: 10 Year
  Sex: Male

DRUGS (4)
  1. MONTELUKAST [Concomitant]
     Active Substance: MONTELUKAST SODIUM
     Indication: INFANTILE ASTHMA
     Route: 048
     Dates: start: 20130920
  2. HOKUNALIN [Concomitant]
     Active Substance: TULOBUTEROL
     Indication: INFANTILE ASTHMA
     Route: 062
     Dates: start: 20130920
  3. MUCODYNE [Concomitant]
     Active Substance: CARBOCYSTEINE
     Indication: INFANTILE ASTHMA
     Route: 048
     Dates: start: 20130920
  4. CONCERTA [Suspect]
     Active Substance: METHYLPHENIDATE HYDROCHLORIDE
     Indication: ATTENTION DEFICIT/HYPERACTIVITY DISORDER
     Route: 048
     Dates: end: 20130920

REACTIONS (2)
  - Infantile asthma [Recovered/Resolved]
  - Nasopharyngitis [Recovered/Resolved]

NARRATIVE: CASE EVENT DATE: 201309
